FAERS Safety Report 17794108 (Version 12)
Quarter: 2021Q1

REPORT INFORMATION
  Report Type: Spontaneous
  Country: PL (occurrence: PL)
  Receive Date: 20200515
  Receipt Date: 20210204
  Transmission Date: 20210419
  Serious: Yes (Life-Threatening, Hospitalization, Disabling, Other)
  Sender: FDA-Public Use
  Company Number: PL-MYLANLABS-2020M1048017

PATIENT
  Age: 32 Year
  Sex: Male

DRUGS (19)
  1. PROMETAZIN [Interacting]
     Active Substance: PROMETHAZINE HYDROCHLORIDE
     Indication: ANTITUSSIVE THERAPY
     Dosage: 50 MILLIGRAM, TID(50 MG THREE TIMES A DAY   )
  2. CYPROHEPTADINE. [Concomitant]
     Active Substance: CYPROHEPTADINE
     Indication: SEROTONIN SYNDROME
     Dosage: UNK
  3. ESCITALOPRAM [Interacting]
     Active Substance: ESCITALOPRAM OXALATE
     Indication: ABDOMINAL PAIN UPPER
     Dosage: 10 MILLIGRAM, QD (10 MG/DAY (IN THE MORNING)
  4. GRIPEX NOC [Interacting]
     Active Substance: ACETAMINOPHEN\CHLORPHENIRAMINE MALEATE\DEXTROMETHORPHAN HYDROBROMIDE\PSEUDOEPHEDRINE
     Indication: UPPER RESPIRATORY TRACT INFECTION
     Dosage: UNK (OCCLUSIVE DRESSING TECHNIQUE)
  5. PERAZINE [Interacting]
     Active Substance: PERAZINE
     Indication: INSOMNIA
     Dosage: 50 MILLIGRAM, HS, QD (50 MG FOR NIGHT), IN EVENING
     Route: 048
  6. PERAZINE [Interacting]
     Active Substance: PERAZINE
     Indication: SLEEP DISORDER
  7. CHLORPHENIRAMINE                   /00072501/ [Interacting]
     Active Substance: CHLORPHENIRAMINE
     Indication: UPPER RESPIRATORY TRACT INFECTION
     Dosage: UNK
  8. DEXTROMETHORPHAN [Interacting]
     Active Substance: DEXTROMETHORPHAN
     Indication: ANTITUSSIVE THERAPY
     Dosage: UNK
  9. PSEUDOEPHEDRINE. [Interacting]
     Active Substance: PSEUDOEPHEDRINE HYDROCHLORIDE
     Indication: UPPER RESPIRATORY TRACT INFECTION
     Dosage: UNK
  10. ESOMEPRAZOLE. [Interacting]
     Active Substance: ESOMEPRAZOLE MAGNESIUM
     Indication: ABDOMINAL PAIN UPPER
     Dosage: 40 MILLIGRAM, QD (40MG/DAY)
     Route: 048
  11. PROMETAZIN [Interacting]
     Active Substance: PROMETHAZINE HYDROCHLORIDE
     Indication: COUGH
     Dosage: 150 MILLIGRAM, QD (50 MG, TID (3/DAY))
     Route: 048
  12. DEXTROMETHORPHAN [Interacting]
     Active Substance: DEXTROMETHORPHAN
     Indication: COUGH
  13. ESCITALOPRAM [Suspect]
     Active Substance: ESCITALOPRAM OXALATE
     Indication: DEPRESSION
     Dosage: 10 MILLIGRAM, QD (10 MG/DAY (IN THE MORNING)
     Route: 048
  14. ESCITALOPRAM [Interacting]
     Active Substance: ESCITALOPRAM OXALATE
     Dosage: UNK
  15. PROMETAZIN [Interacting]
     Active Substance: PROMETHAZINE HYDROCHLORIDE
     Dosage: UNK
  16. METAMIZOLE [Interacting]
     Active Substance: METAMIZOLE
     Indication: PYREXIA
     Dosage: UNK
  17. ESOMEPRAZOLE. [Interacting]
     Active Substance: ESOMEPRAZOLE MAGNESIUM
     Indication: ABDOMINAL PAIN
     Dosage: 40 MILLIGRAM, QD (40MG/DAY)
  18. ESOMEPRAZOLE. [Interacting]
     Active Substance: ESOMEPRAZOLE MAGNESIUM
     Dosage: UNK
  19. PARACETAMOL [Interacting]
     Active Substance: ACETAMINOPHEN
     Indication: UPPER RESPIRATORY TRACT INFECTION
     Dosage: UNK

REACTIONS (22)
  - Serotonin syndrome [Recovered/Resolved]
  - Abdominal pain upper [Recovered/Resolved]
  - Pyrexia [Recovering/Resolving]
  - Medication error [Not Recovered/Not Resolved]
  - Clonus [Recovered/Resolved]
  - Restless legs syndrome [Recovered/Resolved]
  - Nasal congestion [Recovering/Resolving]
  - Body temperature increased [Recovered/Resolved]
  - Hypersomnia [Recovered/Resolved]
  - Upper respiratory tract infection [Recovered/Resolved]
  - Hyperhidrosis [Recovered/Resolved]
  - Restlessness [Recovered/Resolved]
  - Diarrhoea [Recovered/Resolved]
  - Labelled drug-drug interaction medication error [Recovered/Resolved]
  - Product use in unapproved indication [Unknown]
  - Abdominal pain [Recovered/Resolved]
  - Drug ineffective [Recovered/Resolved]
  - Respiratory rate increased [Recovered/Resolved]
  - Cough [Recovering/Resolving]
  - Sedation [Recovered/Resolved]
  - Condition aggravated [Recovered/Resolved]
  - Drug interaction [Unknown]
